FAERS Safety Report 23792188 (Version 1)
Quarter: 2024Q2

REPORT INFORMATION
  Report Type: Spontaneous
  Country: TR (occurrence: TR)
  Receive Date: 20240429
  Receipt Date: 20240429
  Transmission Date: 20240716
  Serious: Yes (Hospitalization)
  Sender: FDA-Public Use
  Company Number: TR-NOVITIUMPHARMA-2024TRNVP00652

PATIENT
  Age: 47 Year
  Sex: Female

DRUGS (2)
  1. DEXAMETHASONE [Suspect]
     Active Substance: DEXAMETHASONE
     Indication: Migraine
     Dosage: 4 MG IN 2.5 ML SOLUTION
  2. BUPIVACAINE [Concomitant]
     Active Substance: BUPIVACAINE
     Indication: Migraine

REACTIONS (1)
  - Swelling face [Recovering/Resolving]
